FAERS Safety Report 5534511-2 (Version None)
Quarter: 2007Q4

REPORT INFORMATION
  Report Type: 
  Country: None (occurrence: None)
  Receive Date: 20071204
  Receipt Date: 20071204
  Transmission Date: 20080405
  Serious: No
  Sender: FDA-Public Use
  Company Number: None

PATIENT
  Age: 43 Year
  Sex: Female
  Weight: 105.2345 kg

DRUGS (2)
  1. NEXIUM [Suspect]
     Indication: DYSPEPSIA
     Dosage: 40 MG  DAILY  PO
     Route: 048
     Dates: start: 20060621, end: 20070910
  2. AMOXICILLIN [Suspect]
     Indication: EAR INFECTION
     Dosage: 875   TWICE DAILY  PO
     Route: 048
     Dates: start: 20070220, end: 20070302

REACTIONS (10)
  - ATAXIA [None]
  - DIZZINESS [None]
  - DYSPHAGIA [None]
  - EAR INFECTION [None]
  - EYE MOVEMENT DISORDER [None]
  - FALL [None]
  - NAUSEA [None]
  - OSCILLOPSIA [None]
  - SENSATION OF FOREIGN BODY [None]
  - VISION BLURRED [None]
